FAERS Safety Report 6555713-2 (Version None)
Quarter: 2010Q1

REPORT INFORMATION
  Report Type: 
  Country: None (occurrence: None)
  Receive Date: 20100128
  Receipt Date: 20100118
  Transmission Date: 20100710
  Serious: Yes (Other)
  Sender: FDA-Public Use
  Company Number: US-ELI_LILLY_AND_COMPANY-US201001003867

PATIENT
  Sex: Female

DRUGS (3)
  1. ZYPREXA [Suspect]
     Indication: SCHIZOPHRENIA
     Dosage: 10 MG, DAILY (1/D)
  2. ZYPREXA [Suspect]
     Dosage: 20 MG, DAILY (1/D)
  3. ZYPREXA [Suspect]
     Dosage: 10 MG, DAILY (1/D)

REACTIONS (3)
  - INHIBITORY DRUG INTERACTION [None]
  - NEOPLASM MALIGNANT [None]
  - THERAPEUTIC RESPONSE DECREASED [None]
